FAERS Safety Report 7911403-2 (Version None)
Quarter: 2011Q4

REPORT INFORMATION
  Report Type: 
  Country: None (occurrence: None)
  Receive Date: 20111114
  Receipt Date: 20111104
  Transmission Date: 20120403
  Serious: Yes (Hospitalization)
  Sender: FDA-Public Use
  Company Number: JP-ASTELLAS-2011JP008086

PATIENT
  Sex: Male

DRUGS (1)
  1. PROGRAF [Suspect]
     Indication: CORNEAL TRANSPLANT
     Dosage: 4 MG, UNKNOWN/D
     Route: 065

REACTIONS (4)
  - EYE INFLAMMATION [None]
  - OFF LABEL USE [None]
  - INTRAOCULAR PRESSURE INCREASED [None]
  - CYTOMEGALOVIRUS INFECTION [None]
